FAERS Safety Report 10072556 (Version 3)
Quarter: 2014Q2

REPORT INFORMATION
  Report Type: Spontaneous
  Country: US (occurrence: US)
  Receive Date: 20140411
  Receipt Date: 20140425
  Transmission Date: 20141212
  Serious: Yes (Other)
  Sender: FDA-Public Use
  Company Number: US-009507513-1404USA006183

PATIENT
  Sex: Male

DRUGS (5)
  1. PROSCAR [Suspect]
     Indication: PROSTATOMEGALY
     Dosage: UNK
     Route: 048
     Dates: start: 20050711, end: 2006
  2. FINASTERIDE [Suspect]
     Indication: PROSTATOMEGALY
     Dosage: 5 MG, QD
     Route: 048
     Dates: start: 2006, end: 2011
  3. TAMSULOSIN HYDROCHLORIDE [Concomitant]
     Indication: PROSTATOMEGALY
     Dosage: 0.4 MG, UNKNOWN
     Dates: start: 2011, end: 2012
  4. FLOMAX (TAMSULOSIN HYDROCHLORIDE) [Concomitant]
     Indication: PROSTATOMEGALY
  5. THERAPEUTIC RADIOPHARMACEUTICAL (UNSPECIFIED) [Concomitant]
     Indication: PROSTATOMEGALY

REACTIONS (16)
  - Prostate cancer [Unknown]
  - Radiotherapy to prostate [Unknown]
  - Gastrointestinal disorder [Unknown]
  - Contusion [Unknown]
  - Fall [Unknown]
  - Gastroenteritis viral [Unknown]
  - Viral infection [Unknown]
  - Breast mass [Unknown]
  - Haematochezia [Unknown]
  - Sleep apnoea syndrome [Unknown]
  - Nasopharyngitis [Unknown]
  - Obesity [Unknown]
  - Prostatic specific antigen increased [Unknown]
  - Gynaecomastia [Unknown]
  - Erectile dysfunction [Unknown]
  - Drug ineffective [Unknown]
